FAERS Safety Report 10017350 (Version 1)
Quarter: 2014Q1

REPORT INFORMATION
  Report Type: Spontaneous
  Country: US (occurrence: None)
  Receive Date: 20140313
  Receipt Date: 20140313
  Transmission Date: 20141002
  Serious: Yes (Other)
  Sender: FDA-Public Use
  Company Number: None

PATIENT
  Age: 56 Year
  Sex: Male
  Weight: 83.92 kg

DRUGS (1)
  1. MURO 128 [Suspect]
     Indication: DRY EYE
     Dosage: 1 RIBBON ONCE DAILY INTO THE EYE
     Dates: start: 20140131, end: 20140305

REACTIONS (2)
  - Corneal abrasion [None]
  - Blindness unilateral [None]
